FAERS Safety Report 10044683 (Version 2)
Quarter: 2014Q1

REPORT INFORMATION
  Report Type: Spontaneous
  Country: US (occurrence: US)
  Receive Date: 20140328
  Receipt Date: 20140328
  Transmission Date: 20141002
  Serious: Yes (Disabling)
  Sender: FDA-Public Use
  Company Number: US-GE HEALTHCARE MEDICAL DIAGNOSTICS-OSCN-PR-0908S-0386

PATIENT
  Sex: Female

DRUGS (3)
  1. OMNISCAN [Suspect]
     Indication: PRODUCT USED FOR UNKNOWN INDICATION
     Route: 042
     Dates: start: 20020521, end: 20020521
  2. OMNISCAN [Suspect]
     Route: 042
     Dates: start: 20041116, end: 20041116
  3. OMNISCAN [Suspect]
     Route: 042
     Dates: start: 20050503, end: 20050503

REACTIONS (1)
  - Nephrogenic systemic fibrosis [Not Recovered/Not Resolved]
